FAERS Safety Report 14403697 (Version 1)
Quarter: 2018Q1

REPORT INFORMATION
  Report Type: Report from Study
  Country: JP (occurrence: JP)
  Receive Date: 20180117
  Receipt Date: 20180117
  Transmission Date: 20180509
  Serious: Yes (Death, Hospitalization)
  Sender: FDA-Public Use
  Company Number: JP-DSJP-DSJ-2017-158632

PATIENT

DRUGS (15)
  1. PLAVIX [Concomitant]
     Active Substance: CLOPIDOGREL BISULFATE
     Dosage: 75MG/DAY
     Route: 048
     Dates: end: 20171030
  2. ARTIST [Concomitant]
     Active Substance: CARVEDILOL
     Indication: ATRIAL FIBRILLATION
     Dosage: 10MG/DAY
     Route: 048
     Dates: end: 20171030
  3. SPIRONOLACTONE. [Concomitant]
     Active Substance: SPIRONOLACTONE
     Dosage: 25MG/DAY
     Route: 048
     Dates: end: 20171030
  4. ASPIRIN                            /00002701/ [Concomitant]
     Active Substance: ASPIRIN
     Dosage: 100MG/DAY
     Route: 048
     Dates: end: 20171030
  5. DIART [Concomitant]
     Active Substance: AZOSEMIDE
     Dosage: 30MG/DAY
     Route: 048
     Dates: end: 20171030
  6. EDOXABAN [Suspect]
     Active Substance: EDOXABAN TOSYLATE
     Indication: ATRIAL FIBRILLATION
     Dosage: 30 MG, QD
     Route: 048
     Dates: start: 20151028, end: 20171030
  7. WARFARIN                           /00014803/ [Concomitant]
     Active Substance: WARFARIN
     Dosage: 1.75MG/DAY
     Route: 048
     Dates: start: 20151021, end: 20151028
  8. ASPENON [Concomitant]
     Active Substance: APRINDINE HYDROCHLORIDE
     Indication: ATRIAL FIBRILLATION
     Dosage: 20MG/DAY
     Route: 048
     Dates: end: 20171030
  9. ATELEC [Concomitant]
     Active Substance: CILNIDIPINE
     Dosage: 10MG/DAY
     Route: 048
     Dates: end: 20171030
  10. LANSOPRAZOLE. [Concomitant]
     Active Substance: LANSOPRAZOLE
     Dosage: 15MG/DAY
     Route: 048
     Dates: end: 20171030
  11. LIVALO [Concomitant]
     Active Substance: PITAVASTATIN CALCIUM
     Dosage: 1MG/DAY
     Route: 048
     Dates: end: 20171030
  12. EPADEL                             /01682402/ [Concomitant]
     Active Substance: ICOSAPENT ETHYL
     Dosage: 1800MG/DAY
     Route: 048
     Dates: end: 20171030
  13. AMIODARONE                         /00133102/ [Concomitant]
     Active Substance: AMIODARONE
     Indication: ATRIAL FIBRILLATION
     Dosage: 200MG/DAY
     Route: 048
     Dates: end: 20171030
  14. WARFARIN                           /00014803/ [Concomitant]
     Active Substance: WARFARIN
     Dosage: 2.25MG/DAY
     Route: 048
     Dates: end: 20151021
  15. RENIVACE [Concomitant]
     Active Substance: ENALAPRIL
     Dosage: 2.5MG/DAY
     Route: 048
     Dates: end: 20171030

REACTIONS (2)
  - Gastrointestinal haemorrhage [Recovered/Resolved with Sequelae]
  - Multiple organ dysfunction syndrome [Fatal]

NARRATIVE: CASE EVENT DATE: 20171017
